FAERS Safety Report 9588236 (Version 1)
Quarter: 2013Q4

REPORT INFORMATION
  Report Type: Spontaneous
  Country: US (occurrence: US)
  Receive Date: 20131003
  Receipt Date: 20131003
  Transmission Date: 20140711
  Serious: No
  Sender: FDA-Public Use
  Company Number: US-AMGEN-USASP2012063255

PATIENT
  Sex: Female
  Weight: 96.6 kg

DRUGS (10)
  1. ENBREL [Suspect]
     Indication: RHEUMATOID ARTHRITIS
     Dosage: 50 MG, QWK
     Route: 058
  2. METHOTREXATE [Concomitant]
     Dosage: 2.5 MG, UNK
  3. IBU [Concomitant]
     Dosage: 400 MG, UNK
  4. LISINOPRIL [Concomitant]
     Dosage: 2.5 MG, UNK
  5. METFORMIN [Concomitant]
     Dosage: 850 MG, UNK
  6. LANSOPRAZOLE [Concomitant]
     Dosage: 15 MG, UNK
  7. METHOCARBAMOL [Concomitant]
     Dosage: 750 MG, UNK
  8. VITAMIN D                          /00107901/ [Concomitant]
     Dosage: 1000 UNIT, UNK
  9. FOLIC ACID [Concomitant]
     Dosage: UNK
  10. CIPROFLOXACIN [Concomitant]
     Dosage: 1000 MG, UNK

REACTIONS (2)
  - Sciatica [Unknown]
  - Nasopharyngitis [Unknown]
